FAERS Safety Report 19919876 (Version 4)
Quarter: 2022Q1

REPORT INFORMATION
  Report Type: Report from Study
  Country: FR (occurrence: FR)
  Receive Date: 20211005
  Receipt Date: 20220122
  Transmission Date: 20220423
  Serious: Yes (Other)
  Sender: FDA-Public Use
  Company Number: NVSC2021FR221466

PATIENT
  Age: 62 Year
  Sex: Female
  Weight: 50 kg

DRUGS (9)
  1. ALPELISIB [Suspect]
     Active Substance: ALPELISIB
     Indication: Breast cancer stage I
     Dosage: 300 MG, QD, 300 MG, 2 50 MG TABLET AND 1 TABLET OF 200 MG
     Route: 048
     Dates: start: 20210830, end: 20210830
  2. ALPELISIB [Suspect]
     Active Substance: ALPELISIB
     Dosage: 300 MG, 2 50 MG TABLET AND 1 TABLET OF 200 MG
     Route: 048
     Dates: start: 20210915, end: 20210915
  3. ALPELISIB [Suspect]
     Active Substance: ALPELISIB
     Dosage: 250 MG, 1 50 MG TABLET AND 1 TABLET OF 200 MG
     Route: 048
     Dates: start: 20211004, end: 20211004
  4. CALCIUM CARBONATE\CHOLECALCIFEROL [Concomitant]
     Active Substance: CALCIUM CARBONATE\CHOLECALCIFEROL
     Indication: Product used for unknown indication
     Dosage: UNK
     Route: 065
     Dates: start: 202011
  5. ATARAX [Concomitant]
     Active Substance: HYDROXYZINE HYDROCHLORIDE
     Indication: Product used for unknown indication
     Dosage: UNK
     Route: 065
     Dates: start: 20210223
  6. XGEVA [Concomitant]
     Active Substance: DENOSUMAB
     Indication: Product used for unknown indication
     Dosage: UNK
     Route: 065
     Dates: start: 202011
  7. AERIUS [Concomitant]
     Indication: Product used for unknown indication
     Dosage: UNK
     Route: 065
     Dates: start: 20210910
  8. XYLOCAINE VISQUEUS [Concomitant]
     Indication: Product used for unknown indication
     Dosage: UNK
     Route: 065
     Dates: start: 20210913
  9. SODIUM BICARBONATE [Concomitant]
     Active Substance: SODIUM BICARBONATE
     Indication: Product used for unknown indication
     Dosage: UNK
     Route: 065
     Dates: start: 20210910

REACTIONS (2)
  - Oedema mouth [Recovered/Resolved]
  - Oedema mouth [Recovered/Resolved]

NARRATIVE: CASE EVENT DATE: 20210915
